FAERS Safety Report 6670580-4 (Version None)
Quarter: 2010Q2

REPORT INFORMATION
  Report Type: 
  Country: None (occurrence: None)
  Receive Date: 20100407
  Receipt Date: 20100330
  Transmission Date: 20101027
  Serious: Yes (Hospitalization, Other)
  Sender: FDA-Public Use
  Company Number: US-ASTRAZENECA-2007UW09603

PATIENT
  Age: 32 Year
  Sex: Male
  Weight: 156.5 kg

DRUGS (20)
  1. SEROQUEL [Suspect]
     Indication: SLEEP DISORDER THERAPY
     Dosage: 10-25 MG
     Route: 048
     Dates: start: 20000101, end: 20070101
  2. SEROQUEL [Suspect]
     Indication: BIPOLAR DISORDER
     Dosage: 10-25 MG
     Route: 048
     Dates: start: 20000101, end: 20070101
  3. SEROQUEL [Suspect]
     Indication: DEPRESSION
     Dosage: 10-25 MG
     Route: 048
     Dates: start: 20000101, end: 20070101
  4. SEROQUEL [Suspect]
     Route: 048
     Dates: start: 20011213
  5. SEROQUEL [Suspect]
     Route: 048
     Dates: start: 20011213
  6. SEROQUEL [Suspect]
     Route: 048
     Dates: start: 20011213
  7. SEROQUEL [Suspect]
     Route: 048
     Dates: start: 20100112
  8. SEROQUEL [Suspect]
     Route: 048
     Dates: start: 20100112
  9. SEROQUEL [Suspect]
     Route: 048
     Dates: start: 20100112
  10. ZYPREXA [Concomitant]
     Dates: start: 20070101, end: 20070101
  11. ABILIFY [Concomitant]
     Dates: start: 20050901
  12. ZOCOR [Concomitant]
     Dates: start: 20050816
  13. ZOLOFT [Concomitant]
     Dates: start: 20020508
  14. LAMICTAL CD [Concomitant]
     Indication: CONVULSION
     Dosage: STRENGTH - 100 MG, 250 MG  DOSE - 100 MG - 500 MG DAILY
     Route: 048
     Dates: start: 20080528
  15. COLCHICINE [Concomitant]
     Route: 048
     Dates: start: 20080528
  16. ALLOPURINOL [Concomitant]
     Dosage: STRENGTH 100 MG, 300 MG  DOSE 100 MG - 300 MG
     Dates: start: 20080528
  17. INDERAL [Concomitant]
     Dosage: STRENGTH 20 MG, 40 MG DOSE 20 MG - 40 MG
     Route: 048
     Dates: start: 20081030
  18. PRILOSEC [Concomitant]
     Dates: start: 20081030
  19. TRAZODONE HCL [Concomitant]
     Indication: INSOMNIA
     Dosage: 50 AT HS AND 100 MG QHS
     Dates: start: 20100112
  20. INVEGA [Concomitant]
     Indication: SCHIZOPHRENIA
     Dosage: 3MG AT HS AND 6 MG AT AM
     Dates: start: 20100112

REACTIONS (12)
  - BLOOD CHOLESTEROL INCREASED [None]
  - DIABETES MELLITUS [None]
  - DIABETES MELLITUS INADEQUATE CONTROL [None]
  - DIABETIC NEPHROPATHY [None]
  - DIABETIC NEUROPATHY [None]
  - DIABETIC RETINOPATHY [None]
  - MENTAL DISORDER [None]
  - NEUROPATHY PERIPHERAL [None]
  - OBESITY [None]
  - SLEEP APNOEA SYNDROME [None]
  - SOMNOLENCE [None]
  - TYPE 2 DIABETES MELLITUS [None]
